FAERS Safety Report 9424350 (Version 1)
Quarter: 2013Q3

REPORT INFORMATION
  Report Type: Spontaneous
  Country: US (occurrence: None)
  Receive Date: 20130726
  Receipt Date: 20130726
  Transmission Date: 20140515
  Serious: Yes (Other)
  Sender: FDA-Public Use
  Company Number: None

PATIENT
  Sex: Male
  Weight: 72.58 kg

DRUGS (1)
  1. CLOMIPRAMINE [Suspect]
     Indication: OBSESSIVE-COMPULSIVE DISORDER
     Dates: start: 2005, end: 2005

REACTIONS (5)
  - Obsessive-compulsive disorder [None]
  - Condition aggravated [None]
  - Product substitution issue [None]
  - Agitation [None]
  - Anxiety [None]
